FAERS Safety Report 22000748 (Version 1)
Quarter: 2023Q1

REPORT INFORMATION
  Report Type: Report from Study
  Country: US (occurrence: US)
  Receive Date: 20230216
  Receipt Date: 20230216
  Transmission Date: 20230417
  Serious: No
  Sender: FDA-Public Use
  Company Number: US-ALLERGAN-2303386US

PATIENT
  Sex: Female

DRUGS (14)
  1. ASENAPINE MALEATE [Suspect]
     Active Substance: ASENAPINE MALEATE
     Indication: Bipolar disorder
     Dosage: 10 MG, QD
     Route: 060
  2. ASPIRIN [Concomitant]
     Active Substance: ASPIRIN
  3. BACTRIM [Concomitant]
     Active Substance: SULFAMETHOXAZOLE\TRIMETHOPRIM
  4. LITHIUM [Concomitant]
     Active Substance: LITHIUM
  5. PENICILLIN [Concomitant]
     Active Substance: PENICILLIN
  6. TRILEPTAL [Concomitant]
     Active Substance: OXCARBAZEPINE
  7. SERZONE [Concomitant]
     Active Substance: NEFAZODONE HYDROCHLORIDE
  8. ALPRAZOLAM [Concomitant]
     Active Substance: ALPRAZOLAM
  9. BUPROPION [Concomitant]
     Active Substance: BUPROPION
  10. CITALOPRAM HYDROBROMIDE [Concomitant]
     Active Substance: CITALOPRAM HYDROBROMIDE
  11. RISPERIDONE [Concomitant]
     Active Substance: RISPERIDONE
  12. BENZTROPINE MESYLATE [Concomitant]
     Active Substance: BENZTROPINE MESYLATE
  13. DIAZEPAM [Concomitant]
     Active Substance: DIAZEPAM
  14. PROPRANOLOL [Concomitant]
     Active Substance: PROPRANOLOL HYDROCHLORIDE

REACTIONS (1)
  - Drug hypersensitivity [Unknown]
